FAERS Safety Report 10189167 (Version 2)
Quarter: 2014Q2

REPORT INFORMATION
  Report Type: Spontaneous
  Country: GB (occurrence: None)
  Receive Date: 20140520
  Receipt Date: 20140618
  Transmission Date: 20141212
  Serious: Yes (Hospitalization)
  Sender: FDA-Public Use
  Company Number: AUR-APL-2014-05805

PATIENT
  Sex: Female
  Weight: 65 kg

DRUGS (6)
  1. AMOXICILLIN [Suspect]
     Indication: PRODUCT USED FOR UNKNOWN INDICATION
  2. CERAZETTE (CEFALORIDINE) [Concomitant]
  3. IBUPROFEN (IBUPROFEN) [Concomitant]
  4. LYMECYCLINE (LYMECYCLIME) [Concomitant]
  5. METFORMIN (METFORMIN) [Concomitant]
  6. SALBUTAMOL (SALBUTAMOL) [Concomitant]

REACTIONS (1)
  - Rash papular [None]
